FAERS Safety Report 21679678 (Version 3)
Quarter: 2022Q4

REPORT INFORMATION
  Report Type: Report from Study
  Country: CA (occurrence: CA)
  Receive Date: 20221205
  Receipt Date: 20221214
  Transmission Date: 20230112
  Serious: Yes (Hospitalization, Other)
  Sender: FDA-Public Use
  Company Number: CA-BRISTOL-MYERS SQUIBB COMPANY-2022-147142

PATIENT
  Age: 77 Year
  Sex: Female
  Weight: 69.85 kg

DRUGS (9)
  1. NIVOLUMAB [Suspect]
     Active Substance: NIVOLUMAB
     Indication: Squamous cell carcinoma of lung
     Route: 042
     Dates: start: 20220902, end: 20221014
  2. PACLITAXEL [Suspect]
     Active Substance: PACLITAXEL
     Indication: Squamous cell carcinoma of lung
     Route: 042
     Dates: start: 20220902, end: 20221014
  3. CARBOPLATIN [Suspect]
     Active Substance: CARBOPLATIN
     Indication: Squamous cell carcinoma of lung
     Route: 042
     Dates: start: 20220902, end: 20221014
  4. APIXABAN [Concomitant]
     Active Substance: APIXABAN
     Indication: Prophylaxis
     Route: 048
     Dates: start: 20221125
  5. HYDROCHLOROTHIAZIDE [Concomitant]
     Active Substance: HYDROCHLOROTHIAZIDE
     Indication: Hypertension
     Route: 048
     Dates: start: 2002
  6. ASPIRIN [Concomitant]
     Active Substance: ASPIRIN
     Indication: Prophylaxis
     Route: 048
     Dates: start: 20220621
  7. PERINDOPRIL ERBUMINE [Concomitant]
     Active Substance: PERINDOPRIL ERBUMINE
     Indication: Hypertension
     Dosage: DIE
     Route: 048
     Dates: start: 2002
  8. DILTIAZEM [Concomitant]
     Active Substance: DILTIAZEM
     Indication: Hypertension
     Dosage: DIE
     Route: 048
     Dates: start: 200211
  9. INDAPAMIDE [Concomitant]
     Active Substance: INDAPAMIDE
     Indication: Hypertension
     Route: 048
     Dates: start: 20221201

REACTIONS (1)
  - Posterior reversible encephalopathy syndrome [Recovered/Resolved]

NARRATIVE: CASE EVENT DATE: 20221129
